FAERS Safety Report 4935230-3 (Version None)
Quarter: 2006Q1

REPORT INFORMATION
  Report Type: 
  Country: None (occurrence: None)
  Receive Date: 20060302
  Receipt Date: 20060221
  Transmission Date: 20060701
  Serious: Yes (Death)
  Sender: FDA-Public Use
  Company Number: USA-2006-0023634

PATIENT
  Age: 67 Year
  Sex: Male

DRUGS (3)
  1. MORPHINE SULFATE [Suspect]
  2. METHADONE HCL [Suspect]
  3. PAROXETINE HCL [Suspect]

REACTIONS (4)
  - ARTERIOSCLEROSIS [None]
  - BRONCHOPNEUMONIA [None]
  - CHRONIC OBSTRUCTIVE PULMONARY DISEASE [None]
  - MULTIPLE DRUG OVERDOSE [None]
